FAERS Safety Report 7046091-3 (Version None)
Quarter: 2010Q4

REPORT INFORMATION
  Report Type: 
  Country: None (occurrence: None)
  Receive Date: 20101014
  Receipt Date: 20101007
  Transmission Date: 20110411
  Serious: Yes (Other)
  Sender: FDA-Public Use
  Company Number: US-RB-013056-10

PATIENT
  Age: 47 Year
  Sex: Female

DRUGS (1)
  1. SUBOXONE TABLET [Suspect]
     Indication: PRODUCT USED FOR UNKNOWN INDICATION
     Dosage: DOSING DETAILS UNKNOWN
     Route: 065

REACTIONS (13)
  - APATHY [None]
  - BALANCE DISORDER [None]
  - FALL [None]
  - FATIGUE [None]
  - FOOD CRAVING [None]
  - HYDROCEPHALUS [None]
  - INTENTIONAL DRUG MISUSE [None]
  - MUSCULAR WEAKNESS [None]
  - NASOPHARYNGITIS [None]
  - PAIN [None]
  - SLUGGISHNESS [None]
  - TOOTH DISORDER [None]
  - WEIGHT INCREASED [None]
